FAERS Safety Report 17028199 (Version 1)
Quarter: 2019Q4

REPORT INFORMATION
  Report Type: Report from Study
  Country: US (occurrence: US)
  Receive Date: 20191113
  Receipt Date: 20191113
  Transmission Date: 20200122
  Serious: Yes (Hospitalization)
  Sender: FDA-Public Use
  Company Number: US-JNJFOC-20191101869

PATIENT
  Sex: Female

DRUGS (15)
  1. SINGULAIR [Concomitant]
     Active Substance: MONTELUKAST SODIUM
  2. ATROVENT [Concomitant]
     Active Substance: IPRATROPIUM BROMIDE
  3. NEURONTIN [Concomitant]
     Active Substance: GABAPENTIN
  4. ZOMETA [Concomitant]
     Active Substance: ZOLEDRONIC ACID
  5. ENTOCORT [Concomitant]
     Active Substance: BUDESONIDE
  6. PROTONIX                           /00661201/ [Concomitant]
     Active Substance: OMEPRAZOLE
  7. LIDODERM [Concomitant]
     Active Substance: LIDOCAINE
  8. FLONASE [Concomitant]
     Active Substance: FLUTICASONE PROPIONATE
  9. RESTASIS [Concomitant]
     Active Substance: CYCLOSPORINE
  10. MEPRON                             /00049601/ [Concomitant]
     Active Substance: METHYLPREDNISOLONE
  11. ELIQUIS [Concomitant]
     Active Substance: APIXABAN
  12. ZITHROMAX [Concomitant]
     Active Substance: AZITHROMYCIN DIHYDRATE
  13. IMBRUVICA [Suspect]
     Active Substance: IBRUTINIB
     Indication: CHRONIC GRAFT VERSUS HOST DISEASE
     Dosage: UNK
     Route: 048
  14. IMBRUVICA [Suspect]
     Active Substance: IBRUTINIB
     Dosage: 280 MG, QD
     Route: 048
  15. ZOVIRAX [Concomitant]
     Active Substance: ACYCLOVIR

REACTIONS (2)
  - Clostridium difficile colitis [Recovered/Resolved]
  - Contusion [Recovering/Resolving]
